FAERS Safety Report 24449645 (Version 1)
Quarter: 2024Q4

REPORT INFORMATION
  Report Type: Spontaneous
  Country: AU (occurrence: AU)
  Receive Date: 20241017
  Receipt Date: 20241017
  Transmission Date: 20250114
  Serious: Yes (Other)
  Sender: BAXTER
  Company Number: AU-BAXTER-2024BAX024643

PATIENT
  Age: 71 Year

DRUGS (2)
  1. DEXTROSE [Suspect]
     Active Substance: DEXTROSE MONOHYDRATE
     Indication: Medication dilution
     Dosage: GLUCOSE 5% VIAFLO BAG DILUTED IN 150 MG CARBOPLATIN
     Route: 065
     Dates: start: 20240906
  2. CARBOPLATIN [Suspect]
     Active Substance: CARBOPLATIN
     Dosage: 150 MG IN 545 ML VOLUME, DILUTED IN GLUCOSE
     Route: 065
     Dates: start: 20240906

REACTIONS (5)
  - Feeling hot [Recovered/Resolved]
  - Flushing [Recovered/Resolved]
  - Nausea [Recovered/Resolved]
  - Diarrhoea [Recovered/Resolved]
  - Vomiting [Recovered/Resolved]

NARRATIVE: CASE EVENT DATE: 20240906
